FAERS Safety Report 8770570 (Version 1)
Quarter: 2012Q4

REPORT INFORMATION
  Report Type: 
  Country: NO (occurrence: NO)
  Receive Date: 20120907
  Receipt Date: 20120907
  Transmission Date: 20130627
  Serious: Yes (Other)
  Sender: FDA-Public Use
  Company Number: NO-TEVA-357607ISR

PATIENT
  Sex: Male

DRUGS (4)
  1. ETOPOSIDE [Suspect]
  2. CELECOXIB [Suspect]
  3. CYTARABINE [Suspect]
  4. THALIDOMIDE [Suspect]

REACTIONS (8)
  - Arachnoiditis [Recovering/Resolving]
  - Fall [Unknown]
  - Fatigue [Unknown]
  - Deafness [Recovering/Resolving]
  - Mucosal inflammation [Unknown]
  - Febrile neutropenia [Recovered/Resolved]
  - Sinusitis [Unknown]
  - Somnolence [Unknown]
